FAERS Safety Report 12811271 (Version 1)
Quarter: 2016Q4

REPORT INFORMATION
  Report Type: Spontaneous
  Country: US (occurrence: US)
  Receive Date: 20161005
  Receipt Date: 20161005
  Transmission Date: 20170207
  Serious: Yes (Other)
  Sender: FDA-Public Use
  Company Number: None

PATIENT
  Age: 37 Year
  Sex: Female
  Weight: 43.09 kg

DRUGS (8)
  1. PROMETRIUM [Concomitant]
     Active Substance: PROGESTERONE
  2. VITAMIN B COMPLEX WITH C [Concomitant]
     Active Substance: ASCORBIC ACID\CALCIUM PANTOTHENATE\CYANOCOBALAMIN\NIACINAMIDE\PYRIDOXINE HYDROCHLORIDE\RIBOFLAVIN\THIAMINE MONONITRATE
  3. BIOTIN [Concomitant]
     Active Substance: BIOTIN
  4. ESTROGEL [Concomitant]
     Active Substance: ESTRADIOL
  5. HYOSCYOMINE SULFATE 0.125MG SUBLINGUAL TABLETS [Suspect]
     Active Substance: HYOSCYAMINE SULFATE
     Indication: GASTROINTESTINAL MOTILITY DISORDER
     Dosage: 1-2 TABLETS?          QUANTITY:? 419.83 21/9? ?
     Route: 048
     Dates: start: 20160908, end: 20160916
  6. CALCIUM [Concomitant]
     Active Substance: CALCIUM
  7. FISH OIL [Concomitant]
     Active Substance: FISH OIL
  8. BLACK CURRENT SEED OIL [Concomitant]

REACTIONS (4)
  - Heart rate increased [None]
  - Dizziness [None]
  - Heart rate irregular [None]
  - Tremor [None]

NARRATIVE: CASE EVENT DATE: 20160819
